FAERS Safety Report 26161137 (Version 1)
Quarter: 2025Q4

REPORT INFORMATION
  Report Type: Spontaneous
  Country: AU (occurrence: AU)
  Receive Date: 20251216
  Receipt Date: 20251216
  Transmission Date: 20260119
  Serious: Yes (Other)
  Sender: ACCORD
  Company Number: None

PATIENT
  Age: 75 Year
  Sex: Male

DRUGS (1)
  1. ROSUVASTATIN CALCIUM [Suspect]
     Active Substance: ROSUVASTATIN CALCIUM
     Indication: Product used for unknown indication

REACTIONS (1)
  - Immune-mediated myositis [Unknown]
